FAERS Safety Report 20820469 (Version 1)
Quarter: 2022Q2

REPORT INFORMATION
  Report Type: Spontaneous
  Country: US (occurrence: US)
  Receive Date: 20220512
  Receipt Date: 20220512
  Transmission Date: 20220720
  Serious: No
  Sender: FDA-Public Use
  Company Number: US-AMNEAL PHARMACEUTICALS-2022-AMRX-00241

PATIENT
  Age: 69 Year
  Sex: Female
  Weight: 65.76 kg

DRUGS (2)
  1. PREGABALIN [Suspect]
     Active Substance: PREGABALIN
     Indication: Fibromyalgia
     Dosage: 25 MILLIGRAM, ONCE DAILY OR 2 CAPSULES A DAY
     Route: 048
     Dates: start: 20220128
  2. PREGABALIN [Suspect]
     Active Substance: PREGABALIN
     Indication: Neuralgia
     Dosage: 75 MILLIGRAM, UNK
     Route: 048

REACTIONS (8)
  - Dysphonia [Not Recovered/Not Resolved]
  - Eye swelling [Not Recovered/Not Resolved]
  - Nasal congestion [Unknown]
  - Swelling face [Not Recovered/Not Resolved]
  - Diplopia [Unknown]
  - Peripheral swelling [Unknown]
  - Feeling abnormal [Unknown]
  - Insomnia [Unknown]

NARRATIVE: CASE EVENT DATE: 20220128
